FAERS Safety Report 24218389 (Version 1)
Quarter: 2024Q3

REPORT INFORMATION
  Report Type: Spontaneous
  Country: FR (occurrence: None)
  Receive Date: 20240816
  Receipt Date: 20240816
  Transmission Date: 20241017
  Serious: Yes (Death)
  Sender: ASTRAZENECA
  Company Number: 2024A184230

PATIENT
  Age: 85 Year
  Sex: Male

DRUGS (14)
  1. EVUSHELD [Suspect]
     Active Substance: CILGAVIMAB\TIXAGEVIMAB
     Indication: COVID-19 prophylaxis
     Dosage: 150+150MG
     Route: 030
     Dates: start: 20220111, end: 20220111
  2. VALACYCLOVIR HYDROCHLORIDE [Concomitant]
     Active Substance: VALACYCLOVIR HYDROCHLORIDE
     Dosage: UNKNOWN
  3. ALBUTEROL [Concomitant]
     Active Substance: ALBUTEROL
  4. ASPIRIN [Concomitant]
     Active Substance: ASPIRIN
  5. IRBESARTAN [Concomitant]
     Active Substance: IRBESARTAN
  6. STRUCTUM [Concomitant]
  7. OBINUTUZUMAB [Concomitant]
     Active Substance: OBINUTUZUMAB
  8. FLECA?NE L.P [Concomitant]
  9. SILODOSIN [Concomitant]
     Active Substance: SILODOSIN
  10. BACTRIM [Concomitant]
     Active Substance: SULFAMETHOXAZOLE\TRIMETHOPRIM
  11. AVOCADO OIL\SOYBEAN OIL [Concomitant]
     Active Substance: AVOCADO OIL\SOYBEAN OIL
  12. CHLORAMBUCIL [Concomitant]
     Active Substance: CHLORAMBUCIL
  13. FOLIC ACID [Concomitant]
     Active Substance: FOLIC ACID
  14. CHOLECALCIFEROL [Concomitant]
     Active Substance: CHOLECALCIFEROL

REACTIONS (2)
  - COVID-19 pneumonia [Fatal]
  - Drug ineffective [Fatal]

NARRATIVE: CASE EVENT DATE: 20220117
